FAERS Safety Report 7482689-6 (Version None)
Quarter: 2011Q2

REPORT INFORMATION
  Report Type: 
  Country: None (occurrence: None)
  Receive Date: 20110516
  Receipt Date: 20110203
  Transmission Date: 20111010
  Serious: Yes (Hospitalization, Other)
  Sender: FDA-Public Use
  Company Number: US-BAYER-201029516NA

PATIENT
  Age: 36 Year
  Sex: Female
  Weight: 73.469 kg

DRUGS (2)
  1. NEXIUM [Concomitant]
  2. YAZ [Suspect]
     Indication: CONTRACEPTION
     Route: 048
     Dates: start: 20080401, end: 20081201

REACTIONS (8)
  - CHEST PAIN [None]
  - CHOLELITHIASIS [None]
  - ABDOMINAL PAIN UPPER [None]
  - CHOLECYSTITIS CHRONIC [None]
  - NAUSEA [None]
  - CHOLESTEROSIS [None]
  - VOMITING [None]
  - GALLBLADDER DISORDER [None]
